FAERS Safety Report 6392258-7 (Version None)
Quarter: 2009Q4

REPORT INFORMATION
  Report Type: 
  Country: None (occurrence: None)
  Receive Date: 20091005
  Receipt Date: 20090917
  Transmission Date: 20100525
  Serious: Yes (Other)
  Sender: FDA-Public Use
  Company Number: ACO_00604_2009

PATIENT
  Sex: Male
  Weight: 65 kg

DRUGS (2)
  1. TIZANIDINE HYDROCHLORIDE [Suspect]
     Indication: MUSCLE SPASMS
     Dosage: (6 MG, QD), (12 MG, FREQUENCY UNKNOWN)
     Dates: start: 20050601
  2. TIZANIDINE HYDROCHLORIDE [Suspect]
     Indication: DRUG USE FOR UNKNOWN INDICATION
     Dosage: (DF)

REACTIONS (2)
  - DYSURIA [None]
  - MUSCLE SPASMS [None]
